FAERS Safety Report 10290770 (Version 3)
Quarter: 2014Q3

REPORT INFORMATION
  Report Type: Spontaneous
  Country: FR (occurrence: None)
  Receive Date: 20140708
  Receipt Date: 20140729
  Transmission Date: 20150326
  Serious: Yes (Death, Hospitalization)
  Sender: FDA-Public Use
  Company Number: AUR-APL-2014-07214

PATIENT
  Age: 63 Year
  Sex: Male

DRUGS (9)
  1. IMUKIN [Suspect]
     Active Substance: INTERFERON GAMMA
     Indication: PRODUCT USED FOR UNKNOWN INDICATION
     Dates: start: 20120825, end: 20120828
  2. INEXIUM /01479302/ (ESOMEPRAZOLE MAGNESIUM) [Concomitant]
  3. CIPROFLOXACIN. [Suspect]
     Active Substance: CIPROFLOXACIN
     Indication: PRODUCT USED FOR UNKNOWN INDICATION
  4. CORDARONE [Suspect]
     Active Substance: AMIODARONE HYDROCHLORIDE
     Indication: PRODUCT USED FOR UNKNOWN INDICATION
     Route: 048
     Dates: start: 20120821, end: 20120829
  5. TYGACIL [Suspect]
     Active Substance: TIGECYCLINE
     Indication: PRODUCT USED FOR UNKNOWN INDICATION
     Route: 042
     Dates: start: 20120824, end: 20120831
  6. FLUCONAZOLE. [Suspect]
     Active Substance: FLUCONAZOLE
     Indication: PRODUCT USED FOR UNKNOWN INDICATION
     Route: 042
     Dates: start: 20120822, end: 20120826
  7. COLISTIN SULFATE [Suspect]
     Active Substance: COLISTIN SULFATE
     Indication: PRODUCT USED FOR UNKNOWN INDICATION
     Dates: start: 20120824, end: 20120830
  8. ORNIDAZOLE [Suspect]
     Active Substance: ORNIDAZOLE
     Indication: PRODUCT USED FOR UNKNOWN INDICATION
     Route: 042
     Dates: start: 20120825, end: 20120829
  9. MOLSIDOMINE [Suspect]
     Active Substance: MOLSIDOMINE
     Indication: PRODUCT USED FOR UNKNOWN INDICATION
     Route: 048
     Dates: start: 20120822, end: 20120828

REACTIONS (18)
  - Peritonitis [None]
  - Shock [None]
  - Haematoma infection [None]
  - Inflammation [None]
  - Acute respiratory distress syndrome [None]
  - Thrombocytopenia [None]
  - Dialysis [None]
  - Immunosuppression [None]
  - Septic shock [None]
  - Multi-organ failure [None]
  - Gastrointestinal perforation [None]
  - Pleural effusion [None]
  - Renal failure [None]
  - Hepatic failure [None]
  - Stenotrophomonas test positive [None]
  - Left ventricular failure [None]
  - Atelectasis [None]
  - Blood disorder [None]

NARRATIVE: CASE EVENT DATE: 20120824
